FAERS Safety Report 9083783 (Version 1)
Quarter: 2013Q1

REPORT INFORMATION
  Report Type: Spontaneous
  Country: JP (occurrence: JP)
  Receive Date: 20130130
  Receipt Date: 20130130
  Transmission Date: 20140127
  Serious: Yes (Other)
  Sender: FDA-Public Use
  Company Number: JP-PFIZER INC-2013035297

PATIENT
  Sex: 0

DRUGS (3)
  1. WYPAX [Suspect]
     Dosage: 25 DF, SINGLE
  2. SOLANAX [Suspect]
     Dosage: 36 DF, SINGLE
  3. HALCION [Suspect]
     Dosage: 30 DF, SINGLE

REACTIONS (2)
  - Suicide attempt [Unknown]
  - Intentional overdose [Unknown]
